FAERS Safety Report 23699215 (Version 5)
Quarter: 2025Q1

REPORT INFORMATION
  Report Type: Spontaneous
  Country: US (occurrence: US)
  Receive Date: 20240402
  Receipt Date: 20250207
  Transmission Date: 20250409
  Serious: Yes (Other)
  Sender: BRISTOL-MYERS SQUIBB COMPANY
  Company Number: US-BRISTOL-MYERS SQUIBB COMPANY-2024-040523

PATIENT
  Age: 54 Year
  Sex: Female

DRUGS (6)
  1. AUGTYRO [Suspect]
     Active Substance: REPOTRECTINIB
     Indication: Product used for unknown indication
     Route: 048
  2. AUGTYRO [Suspect]
     Active Substance: REPOTRECTINIB
     Route: 048
  3. AUGTYRO [Suspect]
     Active Substance: REPOTRECTINIB
     Route: 048
  4. AUGTYRO [Suspect]
     Active Substance: REPOTRECTINIB
     Route: 048
  5. AUGTYRO [Suspect]
     Active Substance: REPOTRECTINIB
     Route: 048
  6. CEFDINIR [Suspect]
     Active Substance: CEFDINIR
     Indication: Product used for unknown indication

REACTIONS (13)
  - Drug intolerance [Unknown]
  - Gastrooesophageal reflux disease [Unknown]
  - Nasopharyngitis [Unknown]
  - Seizure [Unknown]
  - Nervous system disorder [Unknown]
  - Drug hypersensitivity [Unknown]
  - Treatment noncompliance [Unknown]
  - Chest discomfort [Unknown]
  - Dyspnoea [Unknown]
  - Swelling [Unknown]
  - Swelling of eyelid [Unknown]
  - Pain [Unknown]
  - Blood pressure increased [Unknown]

NARRATIVE: CASE EVENT DATE: 20240311
